FAERS Safety Report 18899369 (Version 1)
Quarter: 2021Q1

REPORT INFORMATION
  Report Type: Report from Study
  Country: US (occurrence: US)
  Receive Date: 20210216
  Receipt Date: 20210216
  Transmission Date: 20210420
  Serious: No
  Sender: FDA-Public Use
  Company Number: NVSC2021US028990

PATIENT
  Sex: Male
  Weight: 17.78 kg

DRUGS (2)
  1. ILARIS [Suspect]
     Active Substance: CANAKINUMAB
     Indication: PYREXIA
     Dosage: 30 MG, Q4W
     Route: 065
     Dates: start: 20201013
  2. ILARIS [Suspect]
     Active Substance: CANAKINUMAB
     Dosage: 60 MG, TIW
     Route: 058

REACTIONS (1)
  - Therapeutic product effect incomplete [Unknown]
